FAERS Safety Report 7769801-6 (Version None)
Quarter: 2011Q3

REPORT INFORMATION
  Report Type: 
  Country: None (occurrence: None)
  Receive Date: 20110922
  Receipt Date: 20100826
  Transmission Date: 20111222
  Serious: No
  Sender: FDA-Public Use
  Company Number: US-ASTRAZENECA-2007UW21483

PATIENT
  Age: 17248 Day
  Sex: Male

DRUGS (12)
  1. NEXIUM [Concomitant]
     Route: 048
     Dates: start: 20061113
  2. HALDOL [Concomitant]
     Dates: start: 20070101
  3. SEROQUEL [Suspect]
     Indication: SCHIZOPHRENIA
     Dosage: 200-600 MG
     Route: 048
     Dates: start: 20020101, end: 20060101
  4. ZESTRIL [Concomitant]
     Dates: start: 20031208
  5. BENADRYL [Concomitant]
     Dates: start: 20031208
  6. PREVACID [Concomitant]
     Dates: start: 20031208
  7. BENADRYL [Concomitant]
     Route: 048
     Dates: start: 20030327
  8. SEROQUEL [Suspect]
     Route: 048
     Dates: start: 20030327
  9. SEROQUEL [Suspect]
     Dosage: 200 MG TO 400 MG
     Route: 048
     Dates: start: 20020418, end: 20061101
  10. ZESTRIL [Concomitant]
     Route: 048
     Dates: start: 20061113
  11. PRILOSEC [Concomitant]
     Route: 048
     Dates: start: 20030327
  12. GLUCOPHAGE [Concomitant]
     Route: 048
     Dates: start: 20061113

REACTIONS (3)
  - TYPE 2 DIABETES MELLITUS [None]
  - DIABETIC COMPLICATION [None]
  - OBESITY [None]
